FAERS Safety Report 9947980 (Version 1)
Quarter: 2014Q1

REPORT INFORMATION
  Report Type: Report from Study
  Country: US (occurrence: US)
  Receive Date: 20140303
  Receipt Date: 20140303
  Transmission Date: 20141002
  Serious: No
  Sender: FDA-Public Use
  Company Number: US-ABBVIE-13P-163-1056614-00

PATIENT
  Age: 35 Year
  Sex: Female
  Weight: 63.56 kg

DRUGS (5)
  1. HUMIRA [Suspect]
     Indication: CROHN^S DISEASE
     Dates: start: 201206, end: 201206
  2. HUMIRA [Suspect]
     Dosage: TWO WEEKS AFTER INITIAL DOSE
     Dates: start: 201206, end: 201206
  3. HUMIRA [Suspect]
     Dosage: FOUR WEEKS AFTER INITIAL DOSE
     Dates: start: 201207
  4. LEXAPRO [Concomitant]
     Indication: ANXIETY
  5. PENTASA [Concomitant]
     Indication: CROHN^S DISEASE

REACTIONS (4)
  - Rhinorrhoea [Recovering/Resolving]
  - Nasopharyngitis [Recovering/Resolving]
  - Cough [Recovering/Resolving]
  - Rhinorrhoea [Recovering/Resolving]
